FAERS Safety Report 24185849 (Version 1)
Quarter: 2024Q3

REPORT INFORMATION
  Report Type: Spontaneous
  Country: US (occurrence: US)
  Receive Date: 20240807
  Receipt Date: 20240807
  Transmission Date: 20241016
  Serious: No
  Sender: BIOGEN
  Company Number: US-BIOGEN-2024BI01276713

PATIENT
  Age: 43 Year
  Sex: Male

DRUGS (1)
  1. QALSODY [Suspect]
     Active Substance: TOFERSEN
     Indication: Amyotrophic lateral sclerosis
     Route: 050
     Dates: start: 20240210

REACTIONS (2)
  - CSF pressure decreased [Unknown]
  - Procedural pain [Unknown]

NARRATIVE: CASE EVENT DATE: 20240705
